FAERS Safety Report 5782402-4 (Version None)
Quarter: 2008Q2

REPORT INFORMATION
  Report Type: 
  Country: None (occurrence: None)
  Receive Date: 20080618
  Receipt Date: 20080610
  Transmission Date: 20081010
  Serious: Yes (Death, Other)
  Sender: FDA-Public Use
  Company Number: 062-20785-08060824

PATIENT
  Sex: 0

DRUGS (8)
  1. THALOMID [Suspect]
     Indication: MULTIPLE MYELOMA
     Dosage: 400 MG, EVERY 28 DAYS, ORAL
     Route: 048
  2. DEXAMETHASONE [Suspect]
     Indication: MULTIPLE MYELOMA
     Dosage: 40 MG, DAYS 1-4 AND 15-18
  3. IDARUBICIN HCL [Suspect]
     Indication: MULTIPLE MYELOMA
     Dosage: 8-10 MG/M2 DAY, FOR DAYS 1-4, ORAL
     Route: 048
  4. CYCLOPHOSPHAMIDE [Suspect]
     Indication: MULTIPLE MYELOMA
     Dosage: 200 MG/M2, DAYS 1-4
  5. NEULASTA [Concomitant]
  6. COTRIMOXAZOL (BACTRIM) [Concomitant]
  7. DALTEPARIN SODIUM [Concomitant]
  8. IBANDRONATE (IBANDRONATE SODIUM) [Concomitant]

REACTIONS (13)
  - CIRCULATORY COLLAPSE [None]
  - CONSTIPATION [None]
  - DEHYDRATION [None]
  - DIARRHOEA [None]
  - HAEMATOTOXICITY [None]
  - HAEMORRHAGE [None]
  - MUCOSAL INFLAMMATION [None]
  - MULTIPLE MYELOMA [None]
  - NAUSEA [None]
  - PNEUMONIA [None]
  - PULMONARY EMBOLISM [None]
  - SEPSIS [None]
  - SYNCOPE [None]
